FAERS Safety Report 10084723 (Version 1)
Quarter: 2014Q2

REPORT INFORMATION
  Report Type: Spontaneous
  Country: US (occurrence: None)
  Receive Date: 20140414
  Receipt Date: 20140414
  Transmission Date: 20141212
  Serious: Yes (Disabling, Other)
  Sender: FDA-Public Use
  Company Number: 1402-0351

PATIENT
  Age: 78 Year
  Sex: Female

DRUGS (3)
  1. EYLEA (AFLIBERCEPT) INJECTION)AFLIBERCEPT) [Suspect]
     Indication: AGE-RELATED MACULAR DEGENERATION
     Dosage: 2 MG, Q 4.5 WEEKS
     Route: 031
     Dates: start: 20140107, end: 20140214
  2. LIPITOR (ATORVASTATIN CALCIUM) [Concomitant]
  3. THYROID MEDICATION (NULL) [Concomitant]

REACTIONS (9)
  - Blindness transient [None]
  - Corneal deposits [None]
  - Uveitis [None]
  - Visual acuity reduced [None]
  - Eye inflammation [None]
  - Eye swelling [None]
  - Vitreous floaters [None]
  - Eye irritation [None]
  - Lacrimation increased [None]
